FAERS Safety Report 15159289 (Version 2)
Quarter: 2018Q3

REPORT INFORMATION
  Report Type: Spontaneous
  Country: DK (occurrence: DK)
  Receive Date: 20180718
  Receipt Date: 20180820
  Transmission Date: 20181010
  Serious: Yes (Other)
  Sender: FDA-Public Use
  Company Number: DK-TEVA-2018-DK-845417

PATIENT
  Age: 66 Year
  Sex: Female

DRUGS (2)
  1. VALACICLOVIR TEVA [Suspect]
     Active Substance: VALACYCLOVIR HYDROCHLORIDE
     Indication: GENITAL HERPES
     Dosage: 1000 MILLIGRAM DAILY;
     Route: 048
  2. VALACICLOVIR TEVA [Suspect]
     Active Substance: VALACYCLOVIR HYDROCHLORIDE
     Route: 065
     Dates: start: 2018, end: 20180104

REACTIONS (9)
  - Muscular weakness [Recovered/Resolved]
  - Tremor [Not Recovered/Not Resolved]
  - Tremor [Recovered/Resolved]
  - Fatigue [Not Recovered/Not Resolved]
  - Asthenia [Recovered/Resolved]
  - Speech disorder [Recovered/Resolved]
  - Dysarthria [Recovered/Resolved]
  - Restlessness [Recovered/Resolved]
  - Coordination abnormal [Recovered/Resolved]
